FAERS Safety Report 12934369 (Version 1)
Quarter: 2016Q4

REPORT INFORMATION
  Report Type: Report from Study
  Country: None (occurrence: DO)
  Receive Date: 20161111
  Receipt Date: 20161111
  Transmission Date: 20170207
  Serious: Yes (Hospitalization)
  Sender: FDA-Public Use
  Company Number: DO-ABBVIE-16P-279-1773989-00

PATIENT
  Age: 56 Year
  Sex: Male

DRUGS (1)
  1. ZEMPLAR [Suspect]
     Active Substance: PARICALCITOL
     Indication: HYPERPARATHYROIDISM SECONDARY
     Dosage: THERAPY IS ADMINISTERED DURING HEMODIALYSIS.
     Route: 042
     Dates: start: 20160627

REACTIONS (7)
  - Catheter site pain [Recovering/Resolving]
  - Catheter site swelling [Recovering/Resolving]
  - Pyrexia [Recovering/Resolving]
  - Catheter site infection [Recovering/Resolving]
  - Discomfort [Recovering/Resolving]
  - Hypertension [Recovering/Resolving]
  - Catheter site erythema [Recovering/Resolving]

NARRATIVE: CASE EVENT DATE: 20161031
